FAERS Safety Report 7815669 (Version 2)
Quarter: 2015Q1

REPORT INFORMATION
  Report Type: Spontaneous
  Country: DE (occurrence: DE)
  Receive Date: 20110216
  Receipt Date: 20150128
  Transmission Date: 20150721
  Serious: Yes (Other)
  Sender: FDA-Public Use
  Company Number: GXKR2011DE00927

PATIENT
  Sex: Female

DRUGS (1)
  1. UNOFEM [Suspect]
     Active Substance: LEVONORGESTREL
     Indication: UNINTENDED PREGNANCY
     Dosage: 1.5 MG, ONCE/SINGLE
     Route: 048
     Dates: start: 20091009

REACTIONS (69)
  - Agitation [Recovering/Resolving]
  - Sleep disorder [Recovering/Resolving]
  - Luteal phase deficiency [Recovering/Resolving]
  - Female orgasmic disorder [Recovering/Resolving]
  - Dyspnoea exertional [Not Recovered/Not Resolved]
  - Genital ulceration [Unknown]
  - Dizziness [Recovering/Resolving]
  - Genital hypoaesthesia [None]
  - Emotional disorder [Recovering/Resolving]
  - Paraesthesia [Not Recovered/Not Resolved]
  - Vulvovaginal discomfort [Recovering/Resolving]
  - Blood luteinising hormone decreased [Not Recovered/Not Resolved]
  - Infertility female [Recovering/Resolving]
  - Ovarian failure [Not Recovered/Not Resolved]
  - Gastrointestinal pain [Not Recovered/Not Resolved]
  - Vomiting [Recovering/Resolving]
  - Headache [Unknown]
  - Anxiety [Recovering/Resolving]
  - Sensory disturbance [Not Recovered/Not Resolved]
  - Oestradiol increased [Recovering/Resolving]
  - Alopecia [Unknown]
  - Dyspepsia [Not Recovered/Not Resolved]
  - Crying [Recovering/Resolving]
  - Hypoaesthesia [Not Recovered/Not Resolved]
  - Insomnia [Recovering/Resolving]
  - Bone pain [Not Recovered/Not Resolved]
  - Menstruation irregular [Recovering/Resolving]
  - Menstrual disorder [Recovering/Resolving]
  - Menorrhagia [Not Recovered/Not Resolved]
  - Somnolence [Unknown]
  - Middle insomnia [Not Recovered/Not Resolved]
  - Mental disorder [Unknown]
  - Blood prolactin decreased [Not Recovered/Not Resolved]
  - Androgens decreased [Not Recovered/Not Resolved]
  - Libido decreased [Recovering/Resolving]
  - Bladder dysfunction [Not Recovered/Not Resolved]
  - Abdominal distension [Recovering/Resolving]
  - Suffocation feeling [Not Recovered/Not Resolved]
  - Neck pain [Not Recovered/Not Resolved]
  - Peripheral vascular disorder [Recovering/Resolving]
  - Induration [Not Recovered/Not Resolved]
  - Polymenorrhoea [Recovering/Resolving]
  - Depressed mood [Recovering/Resolving]
  - Activities of daily living impaired [Recovering/Resolving]
  - Visual impairment [Not Recovered/Not Resolved]
  - Blood follicle stimulating hormone decreased [Not Recovered/Not Resolved]
  - Dyspnoea [Not Recovered/Not Resolved]
  - Chest discomfort [Not Recovered/Not Resolved]
  - Muscular weakness [Not Recovered/Not Resolved]
  - Constipation [Unknown]
  - Metrorrhagia [Recovering/Resolving]
  - Disturbance in attention [Not Recovered/Not Resolved]
  - General physical condition abnormal [Recovering/Resolving]
  - Anaemia [Not Recovered/Not Resolved]
  - Gastrointestinal motility disorder [Not Recovered/Not Resolved]
  - Muscle tone disorder [Not Recovered/Not Resolved]
  - Abdominal pain lower [Recovering/Resolving]
  - Burning sensation [Recovering/Resolving]
  - Memory impairment [Not Recovered/Not Resolved]
  - Vulvovaginal dryness [Recovering/Resolving]
  - Adnexa uteri pain [Recovering/Resolving]
  - Hormone level abnormal [Recovering/Resolving]
  - Progesterone decreased [Recovering/Resolving]
  - Muscle spasms [Not Recovered/Not Resolved]
  - Asthenia [Not Recovered/Not Resolved]
  - Hot flush [Not Recovered/Not Resolved]
  - Skin exfoliation [Unknown]
  - Nausea [Recovering/Resolving]
  - Diarrhoea [Recovering/Resolving]
